FAERS Safety Report 15008952 (Version 1)
Quarter: 2018Q2

REPORT INFORMATION
  Report Type: Spontaneous
  Country: US (occurrence: US)
  Receive Date: 20180614
  Receipt Date: 20180614
  Transmission Date: 20180711
  Serious: Yes (Hospitalization, Other)
  Sender: FDA-Public Use
  Company Number: US-SUN PHARMACEUTICAL INDUSTRIES LTD-2018US-175533

PATIENT
  Age: 55 Year
  Sex: Male

DRUGS (3)
  1. LITHIUM. [Suspect]
     Active Substance: LITHIUM
     Indication: BIPOLAR I DISORDER
     Dosage: 900 MG, DAILY
     Route: 065
  2. COCAINE [Suspect]
     Active Substance: COCAINE
     Indication: PRODUCT USED FOR UNKNOWN INDICATION
     Dosage: UNK
     Route: 065
  3. DOXEPIN [Suspect]
     Active Substance: DOXEPIN
     Indication: BIPOLAR I DISORDER
     Dosage: 200 MG, QD (AT BEDTIME)
     Route: 065

REACTIONS (12)
  - Intentional product misuse [Unknown]
  - Drug abuse [Unknown]
  - Hallucination, visual [Unknown]
  - Delusion [Unknown]
  - Miosis [Unknown]
  - Suicidal ideation [Unknown]
  - Tangentiality [Unknown]
  - Tachyphrenia [Unknown]
  - Distractibility [Unknown]
  - Libido increased [Unknown]
  - Grandiosity [Unknown]
  - Tachycardia [Unknown]
